FAERS Safety Report 5406910-0 (Version None)
Quarter: 2007Q3

REPORT INFORMATION
  Report Type: 
  Country: None (occurrence: None)
  Receive Date: 20070807
  Receipt Date: 20070725
  Transmission Date: 20080115
  Serious: Yes (Hospitalization)
  Sender: FDA-Public Use
  Company Number: JP-AMGEN-US149811

PATIENT
  Sex: Female
  Weight: 46 kg

DRUGS (44)
  1. ENBREL [Suspect]
     Indication: RHEUMATOID ARTHRITIS
     Route: 058
     Dates: start: 20050519
  2. VOLTAREN [Suspect]
     Indication: RHEUMATOID ARTHRITIS
     Route: 048
     Dates: end: 20050728
  3. VOLTAREN [Suspect]
     Route: 054
     Dates: start: 20050728, end: 20050818
  4. PREDONINE [Suspect]
     Indication: RHEUMATOID ARTHRITIS
     Route: 048
     Dates: start: 20050317
  5. PREDONINE [Suspect]
     Dosage: DOSE AND FREQUENCY NOT SPECIFIED
     Route: 042
  6. CAMLEED [Concomitant]
     Indication: RHEUMATOID ARTHRITIS
     Route: 048
  7. ISCOTIN [Concomitant]
     Indication: ANTIBIOTIC PROPHYLAXIS
     Route: 048
     Dates: start: 20050106
  8. BAKTAR [Concomitant]
     Indication: PROPHYLAXIS
     Route: 048
  9. ALESION [Concomitant]
     Indication: DRUG HYPERSENSITIVITY
     Route: 048
  10. LIMETHASONE [Concomitant]
     Indication: RHEUMATOID ARTHRITIS
     Dosage: DOSE AND FREQUENCY NOT SPECIFIED
     Route: 042
  11. FAMOTIDINE [Concomitant]
     Dosage: DOSE AND FREQUENCY NOT SPECIFIED
     Route: 048
  12. NERISONA [Concomitant]
  13. PRIMPERAN INJ [Concomitant]
  14. FERRUM [Concomitant]
     Dosage: DOSE AND FREQUENCY NOT SPECIFIED
     Route: 048
  15. SUCRALFATE [Concomitant]
     Dosage: DOSE AND FREQUENCY NOT SPECIFIED
     Route: 048
  16. LANSOPRAZOLE [Concomitant]
     Indication: GASTRIC ULCER HAEMORRHAGE
     Route: 048
  17. NAUZELIN [Concomitant]
     Dosage: DOSE AND FREQUENCY NOT SPECIFIED
     Route: 054
  18. ALLOID [Concomitant]
     Dosage: DOSE AND FREQUENCY NOT SPECIFIED
     Route: 048
  19. RABEPRAZOLE SODIUM [Concomitant]
     Dosage: DOSE AND FREQUENCY NOT SPECIFIED
     Route: 048
  20. LAXOBERON [Concomitant]
     Dosage: DOSE AND FREQUENCY NOT SPECIFIED
     Route: 048
  21. GLUCOSE [Concomitant]
  22. DOGMATYL [Concomitant]
  23. DALACIN TOPICO [Concomitant]
  24. MAGNESIUM OXIDE [Concomitant]
  25. FUNGIZONE [Concomitant]
     Dosage: DOSE AND FREQUENCY NOT SPECIFIED
     Route: 048
  26. LECTISOL [Concomitant]
     Dosage: DOSE AND FREQUENCY NOT SPECIFIED
     Route: 048
  27. FESIN [Concomitant]
     Dosage: DOSE AND FREQUENCY NOT SPECIFIED
     Route: 042
  28. VITAMEDIN [Concomitant]
  29. OMEPRAZOLE [Concomitant]
  30. CEFOTIAM HYDROCHLORIDE [Concomitant]
     Dosage: DOSE AND FREQUENCY NOT SPECIFIED
     Route: 042
  31. PENTAGIN [Concomitant]
  32. HYDROXYZINE [Concomitant]
  33. ERYTHROCIN [Concomitant]
  34. SOLITA-T1 [Concomitant]
  35. SOLITA-T3 [Concomitant]
  36. LACTEC G [Concomitant]
     Dosage: DOSE AND FREQUENCY NOT SPECIFIED
     Route: 051
  37. LACTEC [Concomitant]
     Dosage: DOSE AND FREQUENCY NOT SPECIFIED
     Route: 051
  38. DRENISON [Concomitant]
  39. AMOBAN [Concomitant]
     Indication: INSOMNIA
     Route: 048
  40. BONALON [Concomitant]
     Indication: OSTEOPOROSIS
     Route: 048
  41. PROGRAF [Concomitant]
     Indication: RHEUMATOID ARTHRITIS
     Route: 048
     Dates: start: 20050421, end: 20050525
  42. PROGRAF [Concomitant]
     Route: 048
     Dates: start: 20050526, end: 20050602
  43. PROGRAF [Concomitant]
     Route: 048
     Dates: start: 20051005, end: 20051019
  44. PROGRAF [Concomitant]
     Route: 048
     Dates: start: 20051020

REACTIONS (3)
  - ACID FAST BACILLI INFECTION [None]
  - CELLULITIS STAPHYLOCOCCAL [None]
  - GASTRIC ULCER [None]
